FAERS Safety Report 9007477 (Version 1)
Quarter: 2013Q1

REPORT INFORMATION
  Report Type: Spontaneous
  Country: US (occurrence: US)
  Receive Date: 20130111
  Receipt Date: 20130111
  Transmission Date: 20140127
  Serious: Yes (Life-Threatening)
  Sender: FDA-Public Use
  Company Number: US-009507513-0901USA02228

PATIENT
  Age: 44 Year
  Sex: Male
  Weight: 79.38 kg

DRUGS (2)
  1. SINGULAIR [Suspect]
     Indication: MULTIPLE ALLERGIES
     Route: 048
     Dates: start: 20070601, end: 20080201
  2. SINGULAIR [Suspect]
     Indication: ASTHMA

REACTIONS (2)
  - Activities of daily living impaired [Unknown]
  - Suicidal ideation [Unknown]
